FAERS Safety Report 11907888 (Version 4)
Quarter: 2016Q1

REPORT INFORMATION
  Report Type: Report from Study
  Country: US (occurrence: US)
  Receive Date: 20160111
  Receipt Date: 20160211
  Transmission Date: 20160526
  Serious: Yes (Hospitalization, Other)
  Sender: FDA-Public Use
  Company Number: US-GILEAD-2016-0191377

PATIENT
  Age: 47 Year
  Sex: Female

DRUGS (1)
  1. IDELALISIB [Suspect]
     Active Substance: IDELALISIB
     Indication: B-CELL LYMPHOMA
     Dosage: 150 MG, BID
     Route: 048
     Dates: start: 20150814, end: 201601

REACTIONS (9)
  - Cold sweat [Unknown]
  - Gastrointestinal disorder [Unknown]
  - Diarrhoea [Unknown]
  - Colitis [Unknown]
  - Rectal haemorrhage [Unknown]
  - Food poisoning [Unknown]
  - Pneumonia [Unknown]
  - Haematochezia [Unknown]
  - Pneumonitis [Unknown]
